FAERS Safety Report 4819113-5 (Version None)
Quarter: 2005Q4

REPORT INFORMATION
  Report Type: 
  Country: None (occurrence: None)
  Receive Date: 20051031
  Receipt Date: 20050816
  Transmission Date: 20060501
  Serious: No
  Sender: FDA-Public Use
  Company Number: 2005PV001080

PATIENT
  Age: 61 Year
  Sex: Female
  Weight: 58.9676 kg

DRUGS (13)
  1. SYMLIN [Suspect]
     Indication: DIABETES MELLITUS NON-INSULIN-DEPENDENT
     Dosage: 15 MCG,  SC
     Route: 058
     Dates: start: 20050810
  2. ZETIA [Concomitant]
  3. ZOCOR [Concomitant]
  4. ARIMIDEX [Concomitant]
  5. ALLEGRA [Concomitant]
  6. LISINOPRIL [Concomitant]
  7. NIFEDICAL [Concomitant]
  8. ACTOS [Concomitant]
  9. FUROSEMIDE [Concomitant]
  10. VICODIN [Concomitant]
  11. HUMALOG [Concomitant]
  12. LANTUS [Concomitant]
  13. LANTUS [Concomitant]

REACTIONS (5)
  - BLOOD GLUCOSE DECREASED [None]
  - DISORIENTATION [None]
  - DRUG INEFFECTIVE [None]
  - FEELING ABNORMAL [None]
  - NAUSEA [None]
